FAERS Safety Report 22655129 (Version 5)
Quarter: 2024Q1

REPORT INFORMATION
  Report Type: Report from Study
  Country: BR (occurrence: BR)
  Receive Date: 20230629
  Receipt Date: 20240118
  Transmission Date: 20240410
  Serious: Yes (Life-Threatening)
  Sender: FDA-Public Use
  Company Number: BR-002147023-NVSC2022BR081255

PATIENT
  Sex: Male
  Weight: 90 kg

DRUGS (14)
  1. COSENTYX [Suspect]
     Active Substance: SECUKINUMAB
     Indication: Behcet^s syndrome
     Dosage: 150 MG, QMO (STOPPED AFTER 2 MONTHS)
     Route: 058
     Dates: start: 201905, end: 201907
  2. COSENTYX [Suspect]
     Active Substance: SECUKINUMAB
     Indication: Psoriatic arthropathy
  3. BRINTELLIX [Concomitant]
     Active Substance: VORTIOXETINE HYDROBROMIDE
     Indication: Depression
     Dosage: 1 DOSAGE FORM, BID
     Route: 048
     Dates: start: 2017
  4. FLUXTAR [Concomitant]
     Indication: Depression
     Dosage: UNK
     Route: 065
  5. RIVOTRIL [Concomitant]
     Active Substance: CLONAZEPAM
     Indication: Depression
     Dosage: 1 DOSAGE FORM, QD
     Route: 048
     Dates: start: 2017
  6. PATZ [Concomitant]
     Indication: Depression
     Dosage: UNK
     Route: 065
  7. PREDNISONE [Concomitant]
     Active Substance: PREDNISONE
     Indication: Psoriatic arthropathy
     Dosage: 7.5 MG, QD
     Route: 048
     Dates: start: 2017
  8. AZATHIOPRINE [Concomitant]
     Active Substance: AZATHIOPRINE
     Indication: Psoriatic arthropathy
     Dosage: 5 DOSAGE FORM, QD
     Route: 048
     Dates: start: 2022
  9. DAIVOBET [Concomitant]
     Active Substance: BETAMETHASONE DIPROPIONATE\CALCIPOTRIENE
     Indication: Psoriatic arthropathy
     Dosage: 1 DOSAGE FORM, Q12H
     Route: 003
     Dates: start: 2020
  10. ESCITALOPRAM [Concomitant]
     Active Substance: ESCITALOPRAM OXALATE
     Indication: Depression
     Dosage: 1 DOSAGE FORM, QD
     Route: 048
     Dates: start: 2017
  11. PAX [Concomitant]
     Indication: Depression
     Dosage: 1 DOSAGE FORM, QD
     Route: 048
     Dates: start: 2017
  12. OMEPRAZOLE [Concomitant]
     Active Substance: OMEPRAZOLE
     Indication: Gastrointestinal disorder prophylaxis
     Dosage: 1 DOSAGE FORM, QD
     Route: 048
     Dates: start: 2017
  13. LOSARTAN [Concomitant]
     Active Substance: LOSARTAN
     Indication: Hypertension
     Dosage: 1 DOSAGE FORM, BID
     Route: 048
     Dates: start: 2017
  14. HYDROCHLOROTHIAZIDE [Concomitant]
     Active Substance: HYDROCHLOROTHIAZIDE
     Indication: Hypertension
     Dosage: 1 DOSAGE FORM, QD
     Route: 048
     Dates: start: 2017

REACTIONS (17)
  - Suicide attempt [Unknown]
  - Skin haemorrhage [Recovering/Resolving]
  - Psychomotor hyperactivity [Recovering/Resolving]
  - Arthropathy [Recovering/Resolving]
  - Swelling [Recovering/Resolving]
  - Erythema nodosum [Recovering/Resolving]
  - Psoriasis [Recovering/Resolving]
  - Dysstasia [Recovering/Resolving]
  - Gait disturbance [Recovering/Resolving]
  - Pain [Recovering/Resolving]
  - Locomotive syndrome [Unknown]
  - Ill-defined disorder [Unknown]
  - Musculoskeletal stiffness [Unknown]
  - Movement disorder [Unknown]
  - Off label use [Recovered/Resolved]
  - Therapy non-responder [Unknown]
  - Drug ineffective [Not Recovered/Not Resolved]

NARRATIVE: CASE EVENT DATE: 20190101
